FAERS Safety Report 4535066-1 (Version None)
Quarter: 2004Q4

REPORT INFORMATION
  Report Type: 
  Country: None (occurrence: None)
  Receive Date: 20041222
  Receipt Date: 20041209
  Transmission Date: 20050328
  Serious: Yes (Life-Threatening, Hospitalization)
  Sender: FDA-Public Use
  Company Number: NL-ROCHE-388817

PATIENT
  Age: 48 Year
  Sex: Male
  Weight: 72.2 kg

DRUGS (5)
  1. PEG-INTERFERON ALFA 2A (RO 25-8310) [Suspect]
     Route: 058
     Dates: start: 20030721, end: 20040621
  2. INTERFERON ALFA-2A [Suspect]
     Route: 058
     Dates: start: 20030203, end: 20030303
  3. INTERFERON ALFA-2A [Suspect]
     Route: 058
     Dates: start: 20030303, end: 20030721
  4. RIBAVIRIN [Suspect]
     Route: 048
     Dates: start: 20030203, end: 20040621
  5. PROPRANOLOL [Concomitant]
     Dates: start: 20030203

REACTIONS (4)
  - HAEMODYNAMIC INSTABILITY [None]
  - OESOPHAGEAL VARICES HAEMORRHAGE [None]
  - PLATELET COUNT DECREASED [None]
  - PROTHROMBIN TIME PROLONGED [None]
